FAERS Safety Report 5843892-1 (Version None)
Quarter: 2008Q3

REPORT INFORMATION
  Report Type: 
  Country: None (occurrence: None)
  Receive Date: 20080813
  Receipt Date: 20080801
  Transmission Date: 20090109
  Serious: Yes (Other)
  Sender: FDA-Public Use
  Company Number: CA-WYE-H05334508

PATIENT
  Age: 50 Year
  Sex: Male

DRUGS (1)
  1. SIROLIMUS [Suspect]

REACTIONS (2)
  - DEMYELINATING POLYNEUROPATHY [None]
  - NORMOCHROMIC NORMOCYTIC ANAEMIA [None]
